FAERS Safety Report 19908944 (Version 2)
Quarter: 2021Q4

REPORT INFORMATION
  Report Type: Spontaneous
  Country: US (occurrence: None)
  Receive Date: 20211001
  Receipt Date: 20211101
  Transmission Date: 20220303
  Serious: No
  Sender: FDA-Public Use
  Company Number: 2021A730516

PATIENT
  Age: 26083 Day
  Sex: Male
  Weight: 118 kg

DRUGS (2)
  1. CALQUENCE [Suspect]
     Active Substance: ACALABRUTINIB
     Indication: Waldenstrom^s macroglobulinaemia
     Route: 048
     Dates: start: 20210902, end: 20210926
  2. XARELTO [Suspect]
     Active Substance: RIVAROXABAN
     Route: 048
     Dates: start: 20170829, end: 20210927

REACTIONS (7)
  - Blood blister [Not Recovered/Not Resolved]
  - Bleeding time prolonged [Recovered/Resolved]
  - Joint injury [Recovered/Resolved]
  - Off label use [Not Recovered/Not Resolved]
  - Haematuria [Unknown]
  - Haemorrhage [Not Recovered/Not Resolved]
  - Contusion [Not Recovered/Not Resolved]

NARRATIVE: CASE EVENT DATE: 20210903
